FAERS Safety Report 10587242 (Version 1)
Quarter: 2014Q4

REPORT INFORMATION
  Report Type: Spontaneous
  Country: GB (occurrence: GB)
  Receive Date: 20141117
  Receipt Date: 20141117
  Transmission Date: 20150529
  Serious: Yes (Death)
  Sender: FDA-Public Use
  Company Number: GB-TEVA-520854ISR

PATIENT
  Age: 82 Year
  Sex: Female
  Weight: 74.15 kg

DRUGS (8)
  1. RISPERIDONE. [Concomitant]
     Active Substance: RISPERIDONE
     Indication: DELIRIUM
     Dates: start: 20140806, end: 20140930
  2. SPIRONOLACTONE. [Concomitant]
     Active Substance: SPIRONOLACTONE
  3. FUROSEMIDE. [Concomitant]
     Active Substance: FUROSEMIDE
  4. METOLAZONE. [Concomitant]
     Active Substance: METOLAZONE
  5. BUMETANIDE. [Suspect]
     Active Substance: BUMETANIDE
     Indication: CARDIAC FAILURE CHRONIC
     Dosage: 10 MILLIGRAM DAILY;
     Route: 048
     Dates: start: 20140724, end: 20140930
  6. LANTUS [Concomitant]
     Active Substance: INSULIN GLARGINE
     Indication: DIABETES MELLITUS
     Dates: end: 20140929
  7. SENNA [Concomitant]
     Active Substance: SENNA LEAF\SENNOSIDES\SENNOSIDES A AND B
     Indication: CONSTIPATION
     Dates: start: 20140812, end: 20140930
  8. BISOPROLOL [Concomitant]
     Active Substance: BISOPROLOL
     Indication: ATRIAL FIBRILLATION
     Dates: start: 20140723, end: 20140930

REACTIONS (1)
  - Acute kidney injury [Fatal]
